FAERS Safety Report 4883140-2 (Version None)
Quarter: 2006Q1

REPORT INFORMATION
  Report Type: 
  Country: None (occurrence: None)
  Receive Date: 20060117
  Receipt Date: 20060117
  Transmission Date: 20060701
  Serious: Yes (Hospitalization, Disabling)
  Sender: FDA-Public Use
  Company Number: None

PATIENT
  Age: 45 Year
  Sex: Male
  Weight: 82 kg

DRUGS (12)
  1. OPTIMARK [Suspect]
     Indication: VENTRICULAR DYSFUNCTION
     Dosage: 33 CC  ONCE  IV BOLUS   (ONCE)
     Route: 040
     Dates: start: 20050217, end: 20050217
  2. CORODARONE [Concomitant]
  3. LIPITOR [Concomitant]
  4. CARVEDILOL [Concomitant]
  5. FUROSEMIDE [Concomitant]
  6. MAGNESIUM OXIDE [Concomitant]
  7. PROTONIX [Concomitant]
  8. RAMIPRIL [Concomitant]
  9. NOVOLOG 70/30 INSULIN [Concomitant]
  10. AVANDAMET [Concomitant]
  11. PLAVIX [Concomitant]
  12. ASPIRIN [Concomitant]

REACTIONS (3)
  - DILATATION VENTRICULAR [None]
  - EJECTION FRACTION DECREASED [None]
  - VENTRICULAR HYPERTROPHY [None]
